FAERS Safety Report 9017212 (Version 2)
Quarter: 2013Q1

REPORT INFORMATION
  Report Type: Spontaneous
  Country: US (occurrence: US)
  Receive Date: 20130117
  Receipt Date: 20130214
  Transmission Date: 20140127
  Serious: Yes (Other)
  Sender: FDA-Public Use
  Company Number: US-AMGEN-USASP2013002574

PATIENT
  Age: 55 Year
  Sex: Female
  Weight: 75.28 kg

DRUGS (8)
  1. ENBREL [Suspect]
     Indication: RHEUMATOID ARTHRITIS
     Dosage: 50 MG, QWK
     Route: 058
     Dates: start: 201110
  2. METHOTREXATE [Concomitant]
     Dosage: 20 MG, WEEK
     Dates: start: 2010
  3. FOLIC ACID [Concomitant]
     Indication: RHEUMATOID ARTHRITIS
     Dosage: 1 MG, QD
     Route: 048
     Dates: start: 2010
  4. LEVOTHYROXINE [Concomitant]
     Indication: THYROID DISORDER
     Dosage: 100 MUG, QD
     Route: 048
  5. NEXIUM                             /01479302/ [Concomitant]
     Indication: GASTROOESOPHAGEAL REFLUX DISEASE
     Dosage: 20 MG, QD
     Route: 048
  6. LISINOPRIL [Concomitant]
     Indication: HYPERTENSION
     Dosage: 5 MG, QD
     Route: 048
  7. SIMVASTATIN [Concomitant]
     Indication: BLOOD CHOLESTEROL
     Dosage: 40 MG, QD
     Route: 048
  8. BUPROPION [Concomitant]
     Indication: DEPRESSION
     Dosage: 150 MG, QD
     Route: 048

REACTIONS (2)
  - Vaginal cancer [Unknown]
  - Papilloma viral infection [Unknown]
